FAERS Safety Report 4277747-3 (Version None)
Quarter: 2004Q1

REPORT INFORMATION
  Report Type: 
  Country: None (occurrence: None)
  Receive Date: 20040121
  Receipt Date: 20040105
  Transmission Date: 20041129
  Serious: Yes (Disabling)
  Sender: FDA-Public Use
  Company Number: 2004AP00043

PATIENT
  Sex: Female

DRUGS (1)
  1. RHINOCORT [Suspect]
     Indication: SEASONAL ALLERGY

REACTIONS (6)
  - ASTHENIA [None]
  - DEVICE FAILURE [None]
  - HYPOAESTHESIA [None]
  - PAIN IN EXTREMITY [None]
  - SYNCOPE [None]
  - TENDON INJURY [None]
